FAERS Safety Report 14413089 (Version 2)
Quarter: 2018Q2

REPORT INFORMATION
  Report Type: Spontaneous
  Country: SE (occurrence: SE)
  Receive Date: 20180119
  Receipt Date: 20180405
  Transmission Date: 20180711
  Serious: Yes (Other)
  Sender: FDA-Public Use
  Company Number: SE-TEVA-2018-SE-847158

PATIENT
  Age: 9 Year
  Sex: Female

DRUGS (8)
  1. ATOMOXETINE. [Concomitant]
     Active Substance: ATOMOXETINE HYDROCHLORIDE
     Dates: start: 20150101
  2. MELATONIN [Concomitant]
     Active Substance: MELATONIN
     Dates: start: 20140101
  3. MYCOPHENOLIC ACID. [Concomitant]
     Active Substance: MYCOPHENOLIC ACID
     Dates: start: 20100101
  4. METOPROLOL. [Suspect]
     Active Substance: METOPROLOL
     Indication: ANGIOPATHY
     Dosage: 50 MILLIGRAM DAILY;
     Route: 048
     Dates: start: 20170809, end: 20171031
  5. TACROLIMUS (ANHYDROUS) [Concomitant]
     Dates: start: 20100101
  6. EVEROLIMUS. [Concomitant]
     Active Substance: EVEROLIMUS
     Dates: start: 20170809
  7. TROMBYL [Concomitant]
     Active Substance: ASPIRIN
     Dates: start: 20170809
  8. SIMVASTATIN. [Concomitant]
     Active Substance: SIMVASTATIN
     Dates: start: 20170809

REACTIONS (4)
  - Bradycardia [Recovered/Resolved]
  - Fatigue [Recovered/Resolved]
  - Nightmare [Recovered/Resolved]
  - Delusion [Recovered/Resolved]

NARRATIVE: CASE EVENT DATE: 20171016
